FAERS Safety Report 9013663 (Version 1)
Quarter: 2013Q1

REPORT INFORMATION
  Report Type: Spontaneous
  Country: US (occurrence: None)
  Receive Date: 20130109
  Receipt Date: 20130109
  Transmission Date: 20140127
  Serious: Yes (Hospitalization)
  Sender: FDA-Public Use
  Company Number: None

PATIENT
  Age: 67 Year
  Sex: Male
  Weight: 90.1 kg

DRUGS (2)
  1. VINCRISTINE [Suspect]
     Route: 042
     Dates: start: 20120321, end: 20120321
  2. DOXORUBICIN [Suspect]
     Route: 042
     Dates: start: 20120321, end: 20120321

REACTIONS (12)
  - Flushing [None]
  - Feeling hot [None]
  - Hypertension [None]
  - Acute myocardial infarction [None]
  - Tumour lysis syndrome [None]
  - Erythema [None]
  - Lymphadenopathy [None]
  - Sinus tachycardia [None]
  - Bundle branch block right [None]
  - Bundle branch block left [None]
  - Rash [None]
  - Myocardial ischaemia [None]
